FAERS Safety Report 20725575 (Version 1)
Quarter: 2022Q2

REPORT INFORMATION
  Report Type: Spontaneous
  Country: CA (occurrence: CA)
  Receive Date: 20220419
  Receipt Date: 20220419
  Transmission Date: 20220721
  Serious: Yes (Hospitalization, Other)
  Sender: FDA-Public Use
  Company Number: CA-BRACCO-2022CA01442

PATIENT
  Age: 83 Year
  Sex: Female

DRUGS (13)
  1. ISOVUE 370 [Suspect]
     Active Substance: IOPAMIDOL
     Indication: Scan with contrast
     Dosage: 60 ML, SINGLE
     Route: 042
  2. CIPROFLOXACIN [Suspect]
     Active Substance: CIPROFLOXACIN
     Indication: Infection
     Dosage: 500 MG
     Route: 048
  3. ATORVASTATIN [Concomitant]
     Active Substance: ATORVASTATIN
  4. AVALIDE [Concomitant]
     Active Substance: HYDROCHLOROTHIAZIDE\IRBESARTAN
  5. COLACE [Concomitant]
     Active Substance: DOCUSATE SODIUM
  6. FRAGMIN [Concomitant]
     Active Substance: DALTEPARIN SODIUM
  7. GLYCERIN [Concomitant]
     Active Substance: GLYCERIN
  8. MELATONIN [Concomitant]
     Active Substance: MELATONIN
  9. SENOKOT [Concomitant]
     Active Substance: SENNOSIDES
  10. SYNTHROID [Concomitant]
     Active Substance: LEVOTHYROXINE SODIUM
  11. SOLIFENACIN [Concomitant]
     Active Substance: SOLIFENACIN
  12. TYLENOL [Concomitant]
     Active Substance: ACETAMINOPHEN
  13. VITAMIN D NOS [Concomitant]
     Active Substance: VITAMIN D NOS

REACTIONS (7)
  - Drug reaction with eosinophilia and systemic symptoms [Unknown]
  - Type IV hypersensitivity reaction [Unknown]
  - Lipase increased [Unknown]
  - Proteinuria [Unknown]
  - Hepatic enzyme increased [Unknown]
  - Pyrexia [Unknown]
  - Rash morbilliform [Unknown]
